FAERS Safety Report 10264819 (Version 2)
Quarter: 2014Q3

REPORT INFORMATION
  Report Type: Spontaneous
  Country: NO (occurrence: NO)
  Receive Date: 20140627
  Receipt Date: 20140708
  Transmission Date: 20150326
  Serious: Yes (Hospitalization)
  Sender: FDA-Public Use
  Company Number: NO-OTSUKA-EU-2014-10229

PATIENT
  Sex: Male

DRUGS (5)
  1. ABILIFY MAINTENA [Suspect]
     Active Substance: ARIPIPRAZOLE
     Dosage: 300 MG MILLIGRAM(S), QM
     Route: 030
     Dates: start: 20140404, end: 20140423
  2. ABILIFY MAINTENA [Suspect]
     Active Substance: ARIPIPRAZOLE
     Indication: SCHIZOPHRENIA
     Dosage: 300 MG MILLIGRAM(S), QM
     Route: 030
     Dates: start: 20140207
  3. ABILIFY MAINTENA [Suspect]
     Active Substance: ARIPIPRAZOLE
     Dosage: 300 MG MILLIGRAM(S), QM
     Route: 030
     Dates: start: 20140424, end: 20140519
  4. ABILIFY MAINTENA [Suspect]
     Active Substance: ARIPIPRAZOLE
     Dosage: 400 MG MILLIGRAM(S), QM
     Route: 030
     Dates: start: 20140520
  5. ABILIFY MAINTENA [Suspect]
     Active Substance: ARIPIPRAZOLE
     Dosage: 300 MG MILLIGRAM(S), QM
     Route: 030

REACTIONS (4)
  - Underdose [Unknown]
  - Poor quality sleep [Recovered/Resolved]
  - Schizoaffective disorder [Recovered/Resolved]
  - Drug ineffective [Unknown]

NARRATIVE: CASE EVENT DATE: 201405
